FAERS Safety Report 25084279 (Version 1)
Quarter: 2025Q1

REPORT INFORMATION
  Report Type: Spontaneous
  Country: NL (occurrence: NL)
  Receive Date: 20250317
  Receipt Date: 20250317
  Transmission Date: 20250409
  Serious: Yes (Life-Threatening, Other)
  Sender: MYLAN
  Company Number: None

PATIENT
  Age: 18 Year
  Sex: Male
  Weight: 75 kg

DRUGS (1)
  1. METHYLPHENIDATE HYDROCHLORIDE [Suspect]
     Active Substance: METHYLPHENIDATE HYDROCHLORIDE
     Indication: Depression
     Dosage: 12 DOSAGE FORM, QD (12-16 PIECES PER DAY)
     Dates: start: 20171101

REACTIONS (15)
  - Withdrawal syndrome [Not Recovered/Not Resolved]
  - Memory impairment [Not Recovered/Not Resolved]
  - Speech disorder [Not Recovered/Not Resolved]
  - Restless legs syndrome [Not Recovered/Not Resolved]
  - Visual acuity reduced [Not Recovered/Not Resolved]
  - Dependence [Not Recovered/Not Resolved]
  - Depressed mood [Not Recovered/Not Resolved]
  - Confusional state [Not Recovered/Not Resolved]
  - Migraine [Not Recovered/Not Resolved]
  - Akathisia [Not Recovered/Not Resolved]
  - Muscle spasms [Not Recovered/Not Resolved]
  - Hyperhidrosis [Not Recovered/Not Resolved]
  - Pyrexia [Not Recovered/Not Resolved]
  - Fatigue [Not Recovered/Not Resolved]
  - Off label use [Unknown]

NARRATIVE: CASE EVENT DATE: 20171101
